FAERS Safety Report 10594966 (Version 1)
Quarter: 2014Q4

REPORT INFORMATION
  Report Type: Spontaneous
  Country: US (occurrence: None)
  Receive Date: 20141119
  Receipt Date: 20141119
  Transmission Date: 20150529
  Serious: No
  Sender: FDA-Public Use
  Company Number: None

PATIENT
  Age: 48 Year
  Sex: Female
  Weight: 44 kg

DRUGS (1)
  1. FORTEO [Suspect]
     Active Substance: TERIPARATIDE
     Indication: OSTEOPOROSIS
     Dosage: 600 MCG/24 ML ONCE DAILY INJECTION IN STOMACH
     Dates: start: 20141027, end: 20141112

REACTIONS (3)
  - Abdominal pain upper [None]
  - Dysphagia [None]
  - Sensation of foreign body [None]

NARRATIVE: CASE EVENT DATE: 20141109
